FAERS Safety Report 16873625 (Version 1)
Quarter: 2019Q4

REPORT INFORMATION
  Report Type: Spontaneous
  Country: CH (occurrence: CH)
  Receive Date: 20191001
  Receipt Date: 20191001
  Transmission Date: 20200122
  Serious: Yes (Hospitalization, Other)
  Sender: FDA-Public Use
  Company Number: PHHY2019CH226373

PATIENT
  Age: 44 Year
  Sex: Male

DRUGS (15)
  1. CUBICIN [Suspect]
     Active Substance: DAPTOMYCIN
     Indication: OFF LABEL USE
  2. OPIUM. [Concomitant]
     Active Substance: OPIUM
     Indication: PRODUCT USED FOR UNKNOWN INDICATION
     Dosage: UNK UKN, UNK
     Dates: start: 201310, end: 20131117
  3. IMODIUM [Concomitant]
     Active Substance: LOPERAMIDE HYDROCHLORIDE
     Indication: PRODUCT USED FOR UNKNOWN INDICATION
     Dosage: UNK UKN, UNK
     Route: 065
     Dates: start: 20131117
  4. KEFZOL [Suspect]
     Active Substance: CEFAZOLIN SODIUM
     Indication: SEPTIC ARTHRITIS STAPHYLOCOCCAL
     Dosage: 8 G, UNK
     Route: 042
     Dates: start: 20131111, end: 20131117
  5. LASIX [Concomitant]
     Active Substance: FUROSEMIDE
     Indication: PRODUCT USED FOR UNKNOWN INDICATION
     Dosage: UNK UKN, UNK
     Route: 065
     Dates: start: 201310, end: 20131119
  6. RIMACTAN [Suspect]
     Active Substance: RIFAMPIN
     Indication: SEPTIC ARTHRITIS STAPHYLOCOCCAL
     Dosage: 1200 MG, BID
     Route: 042
     Dates: start: 20131023, end: 20131120
  7. BELOC [Concomitant]
     Indication: PRODUCT USED FOR UNKNOWN INDICATION
     Dosage: UNK UKN, UNK
     Route: 065
     Dates: start: 20131116, end: 20131117
  8. TIENAM [Suspect]
     Active Substance: CILASTATIN SODIUM\IMIPENEM
     Indication: PRODUCT USED FOR UNKNOWN INDICATION
     Dosage: UNK UKN, UNK
     Route: 042
     Dates: start: 20131028
  9. TIENAM [Suspect]
     Active Substance: CILASTATIN SODIUM\IMIPENEM
     Dosage: UNK UKN, UNK
     Route: 042
     Dates: start: 20131220, end: 20140123
  10. CUBICIN [Suspect]
     Active Substance: DAPTOMYCIN
     Indication: SEPTIC ARTHRITIS STAPHYLOCOCCAL
     Dosage: 1050 MG, UNK
     Route: 042
     Dates: start: 20131017, end: 20131119
  11. TAVANIC [Suspect]
     Active Substance: LEVOFLOXACIN
     Indication: SEPTIC ARTHRITIS STAPHYLOCOCCAL
     Dosage: 1000 MG, BID
     Route: 048
     Dates: start: 20131018, end: 20131120
  12. FLOXAPEN [Suspect]
     Active Substance: FLUCLOXACILLIN
     Indication: SEPTIC ARTHRITIS STAPHYLOCOCCAL
     Dosage: UNK UKN, UNK
     Route: 065
     Dates: start: 20131017, end: 20131028
  13. CORDARONE [Concomitant]
     Active Substance: AMIODARONE HYDROCHLORIDE
     Indication: PRODUCT USED FOR UNKNOWN INDICATION
     Dosage: UNK UKN, UNK
     Route: 065
     Dates: start: 20131103, end: 20131115
  14. HEPARIN [Concomitant]
     Active Substance: HEPARIN SODIUM
     Indication: PRODUCT USED FOR UNKNOWN INDICATION
     Dosage: UNK UKN, UNK
     Route: 065
     Dates: start: 20131113, end: 20140123
  15. ACTRAPID [Concomitant]
     Active Substance: INSULIN HUMAN
     Indication: PRODUCT USED FOR UNKNOWN INDICATION
     Dosage: UNK UKN, UNK
     Route: 065

REACTIONS (8)
  - Drug reaction with eosinophilia and systemic symptoms [Recovered/Resolved]
  - Erythema [Recovered/Resolved]
  - Rash macular [Unknown]
  - Tubulointerstitial nephritis [Unknown]
  - Condition aggravated [Recovered/Resolved]
  - Pyrexia [Unknown]
  - Eosinophil count increased [Recovered/Resolved]
  - Acute kidney injury [Recovered/Resolved]
